FAERS Safety Report 25460372 (Version 1)
Quarter: 2025Q2

REPORT INFORMATION
  Report Type: Spontaneous
  Country: US (occurrence: US)
  Receive Date: 20250620
  Receipt Date: 20250620
  Transmission Date: 20250716
  Serious: Yes (Life-Threatening, Hospitalization)
  Sender: MYLAN
  Company Number: US-MYLANLABS-2025M1050119

PATIENT
  Age: 44 Year
  Sex: Female

DRUGS (10)
  1. ETOPOSIDE [Suspect]
     Active Substance: ETOPOSIDE
     Indication: Gestational trophoblastic tumour
  2. METHOTREXATE [Suspect]
     Active Substance: METHOTREXATE
     Indication: Gestational trophoblastic tumour
  3. CISPLATIN [Suspect]
     Active Substance: CISPLATIN
     Indication: Gestational trophoblastic tumour
  4. CARBOPLATIN [Suspect]
     Active Substance: CARBOPLATIN
     Indication: Gestational trophoblastic tumour
  5. ACTINOMYCIN D [Suspect]
     Active Substance: DACTINOMYCIN
     Indication: Gestational trophoblastic tumour
  6. PEMBROLIZUMAB [Concomitant]
     Active Substance: PEMBROLIZUMAB
     Indication: Gestational trophoblastic tumour
     Dosage: 200 MILLIGRAM, Q21D, CYCLICAL
  7. PEMBROLIZUMAB [Concomitant]
     Active Substance: PEMBROLIZUMAB
  8. LOVENOX [Concomitant]
     Active Substance: ENOXAPARIN SODIUM
     Indication: Thrombosis prophylaxis
  9. TRANEXAMIC ACID [Concomitant]
     Active Substance: TRANEXAMIC ACID
     Indication: Haemoptysis
     Dosage: 500 MILLIGRAM, Q8H, RESPIRATORY INHALATION (NEBULISED)
  10. FILGRASTIM [Concomitant]
     Active Substance: FILGRASTIM
     Indication: Febrile neutropenia

REACTIONS (6)
  - Acute respiratory failure [Unknown]
  - Pulmonary alveolar haemorrhage [Unknown]
  - Pulmonary haemorrhage [Unknown]
  - Traumatic haemothorax [Unknown]
  - Infectious pleural effusion [Unknown]
  - Febrile neutropenia [Unknown]
